FAERS Safety Report 8498172-5 (Version None)
Quarter: 2012Q3

REPORT INFORMATION
  Report Type: 
  Country: None (occurrence: None)
  Receive Date: 20120709
  Receipt Date: 20120620
  Transmission Date: 20120928
  Serious: No
  Sender: FDA-Public Use
  Company Number: US-AMGEN-USASP2012034512

PATIENT
  Age: 58 Year
  Sex: Female

DRUGS (1)
  1. ENBREL [Suspect]
     Indication: PSORIATIC ARTHROPATHY
     Dosage: 25 MG, 2 TIMES/WK
     Dates: start: 20000721, end: 20120301

REACTIONS (9)
  - PAIN IN EXTREMITY [None]
  - INSOMNIA [None]
  - DEHYDRATION [None]
  - FATIGUE [None]
  - BRONCHITIS [None]
  - NEPHROLITHIASIS [None]
  - RHINORRHOEA [None]
  - MALAISE [None]
  - NASOPHARYNGITIS [None]
